FAERS Safety Report 9890831 (Version 1)
Quarter: 2014Q1

REPORT INFORMATION
  Report Type: Spontaneous
  Country: BR (occurrence: None)
  Receive Date: 20140210
  Receipt Date: 20140210
  Transmission Date: 20141002
  Serious: Yes (Other)
  Sender: FDA-Public Use
  Company Number: BR-ZYDUS-002497

PATIENT
  Age: 55 Year
  Sex: Female

DRUGS (1)
  1. TOPIRAMATE (TOPIRAMATE) [Suspect]
     Dosage: 25.00-MG- 1.0DAYS

REACTIONS (5)
  - Angle closure glaucoma [None]
  - Torticollis [None]
  - Essential tremor [None]
  - Vision blurred [None]
  - Photopsia [None]
